FAERS Safety Report 9166804 (Version 1)
Quarter: 2012Q4

REPORT INFORMATION
  Report Type: 
  Country: US (occurrence: US)
  Receive Date: 20121108
  Receipt Date: 20121108
  Transmission Date: 20130627
  Serious: Yes (Death, Hospitalization)
  Sender: FDA-Public Use
  Company Number: US-RB-046384-12

PATIENT
  Age: 25 Year
  Sex: Male

DRUGS (1)
  1. SUBOXONE FILM [Suspect]
     Indication: PRODUCT USED FOR UNKNOWN INDICATION
     Dosage: Suboxone film, dosing details unspecified
     Route: 048

REACTIONS (7)
  - Completed suicide [Fatal]
  - Coma [Fatal]
  - Respiratory depression [Fatal]
  - Acidosis [Unknown]
  - Electrocardiogram abnormal [Unknown]
  - Hypotension [Unknown]
  - Intentional drug misuse [Recovered/Resolved]
